FAERS Safety Report 4783543-0 (Version None)
Quarter: 2005Q3

REPORT INFORMATION
  Report Type: 
  Country: None (occurrence: None)
  Receive Date: 20050928
  Receipt Date: 20050928
  Transmission Date: 20060218
  Serious: Yes (Hospitalization)
  Sender: FDA-Public Use
  Company Number: None

PATIENT
  Age: 64 Year
  Sex: Male
  Weight: 132.9039 kg

DRUGS (3)
  1. BUMETANIDE [Suspect]
     Indication: ISCHAEMIC CARDIOMYOPATHY
     Dosage: 4 MG BID PO
     Route: 048
     Dates: start: 20050830, end: 20050927
  2. METOLAZONE [Suspect]
     Indication: ISCHAEMIC CARDIOMYOPATHY
     Dosage: 5 MG DAILY PO
     Route: 048
     Dates: start: 20050830, end: 20050921
  3. HYDROCHLOROTHIAZIDE [Concomitant]

REACTIONS (7)
  - ASTHENIA [None]
  - DEHYDRATION [None]
  - MUSCLE SPASMS [None]
  - OVERDOSE [None]
  - SYNCOPE [None]
  - THIRST [None]
  - VISUAL DISTURBANCE [None]
